FAERS Safety Report 10631394 (Version 1)
Quarter: 2014Q4

REPORT INFORMATION
  Report Type: Spontaneous
  Country: US (occurrence: None)
  Receive Date: 20141121
  Receipt Date: 20141121
  Transmission Date: 20150529
  Serious: No
  Sender: FDA-Public Use
  Company Number: 163-10004-14083800

PATIENT
  Age: 65 Year
  Sex: Male

DRUGS (4)
  1. PLAQUENIL (HYDROXYCHLOROQUINE PHOSPHATE) [Concomitant]
     Active Substance: HYDROXYCHLOROQUINE SULFATE
  2. METHOTREXATE [Concomitant]
     Active Substance: METHOTREXATE
  3. OTEZLA [Suspect]
     Active Substance: APREMILAST
     Indication: PSORIATIC ARTHROPATHY
     Route: 048
     Dates: start: 20140523, end: 20140730
  4. OTEZLA [Suspect]
     Active Substance: APREMILAST
     Indication: ANKYLOSING SPONDYLITIS
     Route: 048
     Dates: start: 20140523, end: 20140730

REACTIONS (2)
  - Treatment failure [None]
  - Insomnia [None]

NARRATIVE: CASE EVENT DATE: 20140523
